FAERS Safety Report 8418784-4 (Version None)
Quarter: 2012Q2

REPORT INFORMATION
  Report Type: 
  Country: None (occurrence: None)
  Receive Date: 20120530
  Receipt Date: 20120518
  Transmission Date: 20120825
  Serious: Yes (Congenital Anomaly)
  Sender: FDA-Public Use
  Company Number: 2012SP027653

PATIENT
  Age: 0 Year
  Sex: Female

DRUGS (1)
  1. NEXPLANON [Suspect]
     Indication: MATERNAL EXPOSURE DURING PREGNANCY
     Dosage: TRPL
     Route: 064
     Dates: start: 20110613, end: 20110811

REACTIONS (2)
  - BLINDNESS CONGENITAL [None]
  - MATERNAL DRUGS AFFECTING FOETUS [None]
